FAERS Safety Report 6318257-9 (Version None)
Quarter: 2009Q3

REPORT INFORMATION
  Report Type: 
  Country: None (occurrence: None)
  Receive Date: 20090821
  Receipt Date: 20090813
  Transmission Date: 20100115
  Serious: Yes (Hospitalization, Other)
  Sender: FDA-Public Use
  Company Number: US-ABBOTT-09P-163-0502735-00

PATIENT
  Sex: Female
  Weight: 64.922 kg

DRUGS (4)
  1. DEPAKOTE [Suspect]
     Indication: BIPOLAR DISORDER
     Dates: start: 19930101
  2. DEPAKOTE [Suspect]
  3. GABAPENTIN [Suspect]
     Indication: DRUG USE FOR UNKNOWN INDICATION
     Dosage: DECREASING DOSES
  4. CLONAZEPAM [Concomitant]
     Indication: DRUG USE FOR UNKNOWN INDICATION

REACTIONS (13)
  - ANXIETY [None]
  - BASILAR MIGRAINE [None]
  - CARDIAC ABLATION [None]
  - CARDIAC DISORDER [None]
  - DIZZINESS [None]
  - HEADACHE [None]
  - HEART RATE INCREASED [None]
  - MOOD ALTERED [None]
  - NAUSEA [None]
  - PHOTOPSIA [None]
  - PRESYNCOPE [None]
  - VISION BLURRED [None]
  - VISUAL IMPAIRMENT [None]
